FAERS Safety Report 20094229 (Version 2)
Quarter: 2021Q4

REPORT INFORMATION
  Report Type: Spontaneous
  Country: PT (occurrence: PT)
  Receive Date: 20211122
  Receipt Date: 20211203
  Transmission Date: 20220303
  Serious: Yes (Life-Threatening, Hospitalization, Other)
  Sender: FDA-Public Use
  Company Number: PT-ARISTO PHARMA-IBUP202110251

PATIENT
  Age: 65 Year
  Sex: Male

DRUGS (3)
  1. IBUPROFEN [Suspect]
     Active Substance: IBUPROFEN
     Indication: Product used for unknown indication
     Dosage: 4 GRAM(TOTAL)
     Route: 065
  2. ACETAMINOPHEN [Suspect]
     Active Substance: ACETAMINOPHEN
     Indication: Product used for unknown indication
     Route: 065
  3. ACETAMINOPHEN [Suspect]
     Active Substance: ACETAMINOPHEN
     Indication: Toxicity to various agents
     Dosage: 8 GRAM
     Route: 065

REACTIONS (9)
  - Acute kidney injury [Recovering/Resolving]
  - Acid-base balance disorder mixed [Recovering/Resolving]
  - Oesophagitis [Recovering/Resolving]
  - Liver injury [Recovering/Resolving]
  - Iron deficiency anaemia [Recovering/Resolving]
  - Toxicity to various agents [Recovering/Resolving]
  - Haemolysis [Recovered/Resolved]
  - Jaundice [Recovered/Resolved]
  - Overdose [Unknown]
